FAERS Safety Report 4644889-X (Version None)
Quarter: 2005Q2

REPORT INFORMATION
  Report Type: 
  Country: None (occurrence: None)
  Receive Date: 20050426
  Receipt Date: 20050412
  Transmission Date: 20051028
  Serious: Yes (Other)
  Sender: FDA-Public Use
  Company Number: US-AMGEN-US126524

PATIENT
  Age: 73 Year
  Sex: Male

DRUGS (1)
  1. ENBREL [Suspect]
     Indication: PSORIASIS
     Dates: start: 20030401

REACTIONS (1)
  - GAMMA-GLUTAMYLTRANSFERASE INCREASED [None]
